FAERS Safety Report 6060582-3 (Version None)
Quarter: 2009Q1

REPORT INFORMATION
  Report Type: 
  Country: None (occurrence: None)
  Receive Date: 20090130
  Receipt Date: 20090130
  Transmission Date: 20090719
  Serious: Yes (Other)
  Sender: FDA-Public Use
  Company Number: None

PATIENT
  Sex: Female
  Weight: 70.3075 kg

DRUGS (1)
  1. MIRAPEX C BOEHRINGER - INGELHEIM [Suspect]
     Indication: RESTLESS LEGS SYNDROME
     Dosage: 1MG 1 TAB 3XDAILY
     Dates: start: 20081201, end: 20090105

REACTIONS (7)
  - BALANCE DISORDER [None]
  - FALL [None]
  - HALLUCINATION [None]
  - HEAD INJURY [None]
  - MIDDLE INSOMNIA [None]
  - MUSCULAR WEAKNESS [None]
  - SOMNOLENCE [None]
